FAERS Safety Report 8603680-X (Version None)
Quarter: 2012Q3

REPORT INFORMATION
  Report Type: 
  Country: None (occurrence: None)
  Receive Date: 20120817
  Receipt Date: 20120808
  Transmission Date: 20120928
  Serious: Yes (Other)
  Sender: FDA-Public Use
  Company Number: US-ASTRAZENECA-2012SE55904

PATIENT
  Age: 33 Year
  Sex: Male
  Weight: 70.3 kg

DRUGS (3)
  1. SEROQUEL XR [Suspect]
     Route: 048
  2. SEROQUEL XR [Suspect]
     Route: 048
  3. SEROQUEL XR [Suspect]
     Route: 048

REACTIONS (17)
  - HYPERHIDROSIS [None]
  - FEELING ABNORMAL [None]
  - DEPRESSION [None]
  - CONSTIPATION [None]
  - DRUG DOSE OMISSION [None]
  - ERECTILE DYSFUNCTION [None]
  - AGGRESSION [None]
  - RESTLESS LEGS SYNDROME [None]
  - DIARRHOEA [None]
  - SUICIDAL IDEATION [None]
  - LOSS OF LIBIDO [None]
  - VOMITING [None]
  - CHILLS [None]
  - INSOMNIA [None]
  - WEIGHT INCREASED [None]
  - INTENTIONAL DRUG MISUSE [None]
  - HALLUCINATION [None]
